FAERS Safety Report 6206958-2 (Version None)
Quarter: 2009Q2

REPORT INFORMATION
  Report Type: 
  Country: None (occurrence: None)
  Receive Date: 20090528
  Receipt Date: 20090520
  Transmission Date: 20091009
  Serious: Yes (Death)
  Sender: FDA-Public Use
  Company Number: B0573903A

PATIENT
  Age: 41 Year
  Sex: Female

DRUGS (6)
  1. PAXIL [Suspect]
     Indication: DEPRESSION
     Dosage: 30MG PER DAY
     Route: 048
  2. VEGETAMIN A [Concomitant]
     Route: 048
  3. MYSLEE [Concomitant]
     Route: 048
  4. NELBON [Concomitant]
     Route: 048
  5. LEVOTOMIN [Concomitant]
  6. TETRAMIDE [Concomitant]
     Route: 048

REACTIONS (3)
  - CARDIAC FAILURE [None]
  - COMPLETED SUICIDE [None]
  - OVERDOSE [None]
